FAERS Safety Report 9689615 (Version 1)
Quarter: 2013Q4

REPORT INFORMATION
  Report Type: Spontaneous
  Country: US (occurrence: US)
  Receive Date: 20131115
  Receipt Date: 20131115
  Transmission Date: 20140711
  Serious: No
  Sender: FDA-Public Use
  Company Number: US-BIOGENIDEC-2013BI106693

PATIENT
  Age: 49 Year
  Sex: Female

DRUGS (5)
  1. TYSABRI [Suspect]
     Indication: MULTIPLE SCLEROSIS
     Route: 042
     Dates: start: 20061003, end: 20070110
  2. TYSABRI [Suspect]
     Indication: MULTIPLE SCLEROSIS
     Route: 042
     Dates: start: 20090204, end: 20131031
  3. BENADRYL [Concomitant]
     Indication: PREMEDICATION
     Route: 048
  4. PEPCID [Concomitant]
     Indication: PREMEDICATION
     Route: 048
  5. TYLENOL [Concomitant]
     Indication: PREMEDICATION
     Route: 048

REACTIONS (5)
  - Peripheral coldness [Recovered/Resolved]
  - Underdose [Recovered/Resolved]
  - Muscle spasms [Recovered/Resolved]
  - Musculoskeletal stiffness [Recovered/Resolved]
  - Infusion related reaction [Recovered/Resolved]
